FAERS Safety Report 18388258 (Version 2)
Quarter: 2020Q4

REPORT INFORMATION
  Report Type: Spontaneous
  Country: US (occurrence: US)
  Receive Date: 20201015
  Receipt Date: 20201204
  Transmission Date: 20210114
  Serious: Yes (Life-Threatening, Hospitalization, Other)
  Sender: FDA-Public Use
  Company Number: US-JNJFOC-20201014102

PATIENT
  Age: 64 Year
  Sex: Male

DRUGS (16)
  1. NOREPINEPHRINE. [Concomitant]
     Active Substance: NOREPINEPHRINE
     Indication: PRODUCT USED FOR UNKNOWN INDICATION
     Dosage: TITRATED DOWN
     Route: 065
  2. EPINEPHRINE. [Concomitant]
     Active Substance: EPINEPHRINE
     Dosage: TITRATED UP TO 0.06 G/KG/MIN
     Route: 065
  3. EPINEPHRINE. [Concomitant]
     Active Substance: EPINEPHRINE
     Dosage: TITRATED DOWN
     Route: 065
  4. EPINEPHRINE. [Concomitant]
     Active Substance: EPINEPHRINE
     Indication: PRODUCT USED FOR UNKNOWN INDICATION
     Route: 065
  5. SERTRALINE [Interacting]
     Active Substance: SERTRALINE HYDROCHLORIDE
     Indication: DEPRESSION
     Dosage: THE LAST DOSE OF SERTRALINE WAS TAKEN THE MORNING OF SURGERY
     Route: 048
  6. NOREPINEPHRINE. [Concomitant]
     Active Substance: NOREPINEPHRINE
     Dosage: TITRATED UP
  7. DEXMEDETOMIDINE. [Concomitant]
     Active Substance: DEXMEDETOMIDINE
     Indication: SEDATION
     Route: 042
  8. LORAZEPAM. [Concomitant]
     Active Substance: LORAZEPAM
     Indication: AGITATION
     Route: 042
  9. LORAZEPAM. [Concomitant]
     Active Substance: LORAZEPAM
     Dosage: FOLLOWED BY IV LORAZEPAM INFUSION AT 2 MG/H
     Route: 042
  10. FENTANYL. [Suspect]
     Active Substance: FENTANYL
     Indication: PAIN
     Dosage: AS NEEDED
     Route: 040
  11. VASOPRESSIN. [Concomitant]
     Active Substance: VASOPRESSIN
     Indication: PRODUCT USED FOR UNKNOWN INDICATION
     Dosage: TITRATED DOWN
     Route: 065
  12. VASOPRESSIN. [Concomitant]
     Active Substance: VASOPRESSIN
     Dosage: TITRATED UP
     Route: 065
  13. LORAZEPAM. [Concomitant]
     Active Substance: LORAZEPAM
     Dosage: 2 MG IV LORAZEPAM BOLUSES WERE ORDERED EVERY 10 MINUTES
     Route: 040
  14. VASOPRESSIN. [Concomitant]
     Active Substance: VASOPRESSIN
     Dosage: TITRATED UP TO 4 U/H
     Route: 065
  15. METHYLENE BLUE. [Interacting]
     Active Substance: METHYLENE BLUE
     Indication: VASOPLEGIA SYNDROME
     Route: 040
  16. NOREPINEPHRINE. [Concomitant]
     Active Substance: NOREPINEPHRINE
     Dosage: TITRATED UP TO 0.1 G/ KG/MIN
     Route: 065

REACTIONS (3)
  - Encephalopathy [Recovered/Resolved]
  - Drug interaction [Recovered/Resolved]
  - Serotonin syndrome [Recovered/Resolved]
